FAERS Safety Report 9014346 (Version 1)
Quarter: 2013Q1

REPORT INFORMATION
  Report Type: Spontaneous
  Country: US (occurrence: US)
  Receive Date: 20130115
  Receipt Date: 20130115
  Transmission Date: 20140127
  Serious: Yes (Other)
  Sender: FDA-Public Use
  Company Number: US-PFIZER INC-2013014854

PATIENT
  Age: 63 Year
  Sex: Female
  Weight: 72.1 kg

DRUGS (8)
  1. RELPAX [Suspect]
     Indication: MIGRAINE
     Dosage: 40 MG, DAILY
     Route: 048
     Dates: start: 201301
  2. ADVIL [Suspect]
     Dosage: UNK, DAILY
  3. SIMVASTATIN [Suspect]
     Indication: BLOOD CHOLESTEROL INCREASED
     Dosage: 40 MG, DAILY
  4. PROPANOLOL HCL [Suspect]
     Indication: BLOOD PRESSURE INCREASED
     Dosage: 20 MG, 2X/DAY
  5. LORAZEPAM [Suspect]
     Indication: MENIERE^S DISEASE
     Dosage: 0.5 MG, 2X/DAY
  6. HYDROCHLOROTHIAZIDE WITH TRIAMTERENE [Suspect]
     Indication: BLOOD PRESSURE ABNORMAL
     Dosage: 37.5/25 MG, DAILY
  7. ARIMIDEX [Suspect]
     Indication: BREAST CANCER FEMALE
     Dosage: 1 MG, DAILY
  8. ALBUTEROL [Suspect]
     Indication: ASTHMA
     Dosage: UNKNOWN DOSE 1 PUFF AS NEEDED

REACTIONS (3)
  - Blood pressure increased [Recovering/Resolving]
  - Drug ineffective [Unknown]
  - Weight increased [Not Recovered/Not Resolved]
